FAERS Safety Report 7522861-X (Version None)
Quarter: 2011Q2

REPORT INFORMATION
  Report Type: 
  Country: None (occurrence: None)
  Receive Date: 20110603
  Receipt Date: 20110525
  Transmission Date: 20111010
  Serious: Yes (Hospitalization, Other)
  Sender: FDA-Public Use
  Company Number: CA-ABBOTT-10P-028-0682716-04

PATIENT
  Sex: Male
  Weight: 76.8 kg

DRUGS (27)
  1. ALPROSTADIL [Concomitant]
     Indication: ERECTILE DYSFUNCTION
     Route: 050
     Dates: start: 19850101
  2. METFORMIN HCL [Concomitant]
     Route: 048
     Dates: start: 20071202
  3. FUROSEMIDE [Concomitant]
     Route: 048
     Dates: start: 20060314
  4. SENOKOT [Concomitant]
     Indication: CONSTIPATION PROPHYLAXIS
     Dates: start: 20090716
  5. ASPIRIN [Concomitant]
     Indication: CARDIOVASCULAR EVENT PROPHYLAXIS
     Route: 048
     Dates: start: 19950101
  6. METFORMIN HCL [Concomitant]
     Route: 048
     Dates: start: 20000616, end: 20060313
  7. METFORMIN HCL [Concomitant]
     Route: 048
     Dates: start: 20060314, end: 20071003
  8. FUROSEMIDE [Concomitant]
     Indication: CARDIAC FAILURE CONGESTIVE
     Route: 048
     Dates: start: 20060202, end: 20060313
  9. MULTI-VITAMIN [Concomitant]
     Indication: VITAMIN SUPPLEMENTATION
     Route: 048
     Dates: start: 20080701
  10. HUMIRA [Suspect]
     Indication: RHEUMATOID ARTHRITIS
     Route: 058
     Dates: start: 20001116, end: 20101028
  11. METHOTREXATE [Concomitant]
     Indication: RHEUMATOID ARTHRITIS
     Route: 058
     Dates: start: 20041216
  12. ALTACE [Concomitant]
     Indication: CARDIAC FAILURE CONGESTIVE
     Route: 048
     Dates: start: 20040901
  13. CARVEDILOL [Concomitant]
     Indication: CARDIAC FAILURE CONGESTIVE
     Route: 048
     Dates: start: 20040401
  14. DOCUSATE CALCIUM [Concomitant]
     Indication: CONSTIPATION
     Route: 048
     Dates: start: 20090626, end: 20090715
  15. SENOKOT [Concomitant]
     Indication: CONSTIPATION
     Route: 048
     Dates: start: 20090626, end: 20090715
  16. FUROSEMIDE [Concomitant]
     Route: 048
     Dates: start: 20040402, end: 20060201
  17. VITAMIN D [Concomitant]
     Indication: VITAMIN SUPPLEMENTATION
     Route: 048
     Dates: start: 19950101
  18. OXYCODONE HCL AND ACETAMINOPHEN [Concomitant]
     Indication: PRODUCT USED FOR UNKNOWN INDICATION
     Route: 048
  19. METFORMIN HCL [Concomitant]
     Route: 048
     Dates: start: 20071004, end: 20071201
  20. VITAMIN E [Concomitant]
     Indication: VITAMIN SUPPLEMENTATION
     Route: 048
     Dates: start: 20021115
  21. TEMAZEPAM [Concomitant]
     Indication: INSOMNIA
     Route: 048
     Dates: start: 20090316
  22. FOLIC ACID [Concomitant]
     Indication: RHEUMATOID ARTHRITIS
     Route: 048
     Dates: start: 19950101
  23. LIPITOR [Concomitant]
     Indication: HYPERLIPIDAEMIA
     Route: 048
     Dates: start: 20041201
  24. METFORMIN HCL [Concomitant]
     Indication: DIABETES MELLITUS
     Route: 048
     Dates: start: 20000616, end: 20060313
  25. DOCUSATE CALCIUM [Concomitant]
     Indication: CONSTIPATION PROPHYLAXIS
     Route: 048
     Dates: start: 20090716
  26. NASONEX [Concomitant]
     Indication: SINUSITIS
     Route: 055
     Dates: start: 20100224
  27. FLOVENT [Concomitant]
     Indication: PRODUCT USED FOR UNKNOWN INDICATION
     Route: 048

REACTIONS (1)
  - BLADDER CANCER [None]
